FAERS Safety Report 4350480-5 (Version None)
Quarter: 2004Q2

REPORT INFORMATION
  Report Type: 
  Country: None (occurrence: None)
  Receive Date: 20040430
  Receipt Date: 20040421
  Transmission Date: 20050107
  Serious: Yes (Hospitalization)
  Sender: FDA-Public Use
  Company Number: PHBS2004AR05603

PATIENT
  Age: 8 Year
  Sex: Male

DRUGS (3)
  1. TEGRETOL [Suspect]
     Indication: EPILEPSY
     Dosage: 15 ML/DAY
     Route: 048
  2. LOGICAL [Suspect]
     Indication: EPILEPSY
     Dosage: 11 ML/DAY
     Route: 048
  3. LOGICAL [Suspect]
     Dosage: 9 ML/DAY
     Route: 048

REACTIONS (5)
  - ANTICONVULSANT DRUG LEVEL INCREASED [None]
  - ATAXIA [None]
  - SOMNOLENCE [None]
  - VIRAL INFECTION [None]
  - VOMITING [None]
